FAERS Safety Report 21101744 (Version 4)
Quarter: 2022Q3

REPORT INFORMATION
  Report Type: Spontaneous
  Country: US (occurrence: US)
  Receive Date: 20220719
  Receipt Date: 20220801
  Transmission Date: 20221026
  Serious: Yes (Other)
  Sender: FDA-Public Use
  Company Number: US-PFIZER INC-PV202200025356

PATIENT
  Age: 69 Year
  Sex: Female
  Weight: 59.87 kg

DRUGS (5)
  1. DESVENLAFAXINE SUCCINATE [Suspect]
     Active Substance: DESVENLAFAXINE SUCCINATE
     Indication: Grief reaction
     Dosage: 100 MG (FOUR 25MG TABLETS)
     Dates: start: 202112
  2. DESVENLAFAXINE SUCCINATE [Suspect]
     Active Substance: DESVENLAFAXINE SUCCINATE
     Indication: Stress
     Dosage: 1 IN MORNING, 1 AT LUNCH, AND 1 BEFORE SLEEPING
  3. DESVENLAFAXINE SUCCINATE [Suspect]
     Active Substance: DESVENLAFAXINE SUCCINATE
     Dosage: 25 MG, 4X/DAY (25 MG; FOUR A DAY ONE IN THE MORNING AND ONE IN THE AFTERNOON AND TWO AT NIGHT.)
  4. SYNTHROID [Concomitant]
     Active Substance: LEVOTHYROXINE SODIUM
     Indication: Thyroid disorder
     Dosage: UNK
  5. WELLBUTRIN [Concomitant]
     Active Substance: BUPROPION HYDROCHLORIDE
     Dosage: 300MG IN THE MORNING

REACTIONS (13)
  - Sepsis [Unknown]
  - Nephrostomy [Unknown]
  - Hip arthroplasty [Unknown]
  - Drug ineffective [Unknown]
  - Off label use [Unknown]
  - Anxiety [Unknown]
  - Insomnia [Unknown]
  - Headache [Not Recovered/Not Resolved]
  - Tremor [Unknown]
  - Feeling drunk [Unknown]
  - Feeling abnormal [Unknown]
  - Illness [Unknown]
  - Condition aggravated [Unknown]

NARRATIVE: CASE EVENT DATE: 20220106
